FAERS Safety Report 8278799-6 (Version None)
Quarter: 2012Q2

REPORT INFORMATION
  Report Type: 
  Country: None (occurrence: None)
  Receive Date: 20120412
  Receipt Date: 20120309
  Transmission Date: 20120825
  Serious: No
  Sender: FDA-Public Use
  Company Number: US-ASTRAZENECA-2011SE75766

PATIENT
  Age: 86 Year
  Sex: Female

DRUGS (3)
  1. NEXIUM [Suspect]
     Dosage: ONE IN THE MORNING AND ONE IN THE EVENING
     Route: 048
  2. CRESTOR [Suspect]
     Route: 048
  3. NEXIUM [Suspect]
     Dosage: EVERY TWELVE HOUR
     Route: 048

REACTIONS (3)
  - VOMITING [None]
  - INAPPROPRIATE SCHEDULE OF DRUG ADMINISTRATION [None]
  - MALAISE [None]
